FAERS Safety Report 10004183 (Version 2)
Quarter: 2014Q2

REPORT INFORMATION
  Report Type: Spontaneous
  Country: US (occurrence: US)
  Receive Date: 20140312
  Receipt Date: 20140611
  Transmission Date: 20141212
  Serious: No
  Sender: FDA-Public Use
  Company Number: US-INCYTE CORPORATION-2014IN000332

PATIENT
  Age: 54 Year
  Sex: Male

DRUGS (4)
  1. JAKAFI [Suspect]
     Indication: MYELOPROLIFERATIVE DISORDER
     Dosage: 5 MG, BID
     Route: 048
     Dates: start: 201310, end: 201312
  2. JAKAFI [Suspect]
     Indication: SPLENOMEGALY
     Dosage: 10 MG, BID
     Route: 048
     Dates: start: 201312
  3. DEXILANT [Concomitant]
     Dosage: AS NEEDED
  4. IBUPROFEN [Concomitant]
     Dosage: AS NEEDED

REACTIONS (1)
  - Weight loss poor [Unknown]
